FAERS Safety Report 7562865-4 (Version None)
Quarter: 2011Q2

REPORT INFORMATION
  Report Type: 
  Country: None (occurrence: None)
  Receive Date: 20110622
  Receipt Date: 20110613
  Transmission Date: 20111010
  Serious: Yes (Hospitalization)
  Sender: FDA-Public Use
  Company Number: JP-ROCHE-771775

PATIENT
  Sex: Female

DRUGS (8)
  1. FLUOROURACIL [Suspect]
     Indication: LARGE INTESTINE CARCINOMA
     Dosage: DOSAGE:UNCERTAIN
     Route: 041
  2. OXALIPLATIN [Concomitant]
     Route: 041
  3. FLUOROURACIL [Suspect]
     Route: 041
  4. AVASTIN [Suspect]
     Indication: LARGE INTESTINE CARCINOMA
     Route: 041
     Dates: start: 20110119, end: 20110216
  5. FLUOROURACIL [Suspect]
     Dosage: DOSAGE:UNCERTAIN
     Route: 040
  6. ISOVORIN [Suspect]
     Route: 041
  7. FLUOROURACIL [Suspect]
     Dosage: DOSAGE:UNCERTAIN
     Route: 040
  8. ISOVORIN [Suspect]
     Indication: LARGE INTESTINE CARCINOMA
     Dosage: DOSAGE IS UNCERTAIN.
     Route: 041

REACTIONS (1)
  - LIVER DISORDER [None]
